FAERS Safety Report 26056356 (Version 3)
Quarter: 2025Q4

REPORT INFORMATION
  Report Type: Spontaneous
  Country: JP (occurrence: JP)
  Receive Date: 20251118
  Receipt Date: 20251224
  Transmission Date: 20260118
  Serious: Yes (Other)
  Sender: ALEXION PHARMACEUTICALS
  Company Number: JP-ASTRAZENECA-202511JPN007369JP

PATIENT
  Age: 71 Year
  Sex: Male
  Weight: 66 kg

DRUGS (1)
  1. IMFINZI [Suspect]
     Active Substance: DURVALUMAB
     Indication: Bile duct cancer
     Dosage: 1500 MILLIGRAM
     Dates: start: 20240626, end: 20241107

REACTIONS (8)
  - Cerebral infarction [Unknown]
  - Cholangitis [Recovering/Resolving]
  - Epilepsy [Not Recovered/Not Resolved]
  - Tumour haemorrhage [Unknown]
  - Malaise [Recovering/Resolving]
  - Anaemia [Not Recovered/Not Resolved]
  - Platelet count decreased [Recovering/Resolving]
  - Device occlusion [Unknown]

NARRATIVE: CASE EVENT DATE: 20240629
